FAERS Safety Report 17808534 (Version 2)
Quarter: 2020Q2

REPORT INFORMATION
  Report Type: Spontaneous
  Country: US (occurrence: US)
  Receive Date: 20200520
  Receipt Date: 20200520
  Transmission Date: 20200714
  Serious: Yes (Hospitalization, Other)
  Sender: FDA-Public Use
  Company Number: US-JAZZ-JPI-P-009358

PATIENT
  Age: 47 Year
  Sex: Male
  Weight: 101.36 kg

DRUGS (12)
  1. ATOMOXETINE HYDROCHLORIDE. [Concomitant]
     Active Substance: ATOMOXETINE HYDROCHLORIDE
     Indication: PRODUCT USED FOR UNKNOWN INDICATION
  2. XYREM [Suspect]
     Active Substance: SODIUM OXYBATE
     Dosage: 4.5 GRAM, BID
     Route: 048
     Dates: start: 20090818, end: 2009
  3. DEXTROAMPHET SACCHARAT, AMPHET ASPARTATE, DEXTROAMPHET SULFATE AND AMPHET SULFAT [Concomitant]
     Active Substance: AMPHETAMINE ASPARTATE\AMPHETAMINE SULFATE\DEXTROAMPHETAMINE SACCHARATE\DEXTROAMPHETAMINE SULFATE
     Indication: PRODUCT USED FOR UNKNOWN INDICATION
  4. TOPIRAMATE. [Suspect]
     Active Substance: TOPIRAMATE
     Indication: BACK PAIN
     Dates: start: 201102
  5. SERTRALINE HYDROCHLORIDE. [Concomitant]
     Active Substance: SERTRALINE HYDROCHLORIDE
     Indication: PRODUCT USED FOR UNKNOWN INDICATION
  6. HYDROCODONE BITARTRATE AND ACETAMINOPHEN [Concomitant]
     Active Substance: ACETAMINOPHEN\HYDROCODONE BITARTRATE
     Indication: PRODUCT USED FOR UNKNOWN INDICATION
  7. MODAFINIL. [Concomitant]
     Active Substance: MODAFINIL
     Indication: PRODUCT USED FOR UNKNOWN INDICATION
  8. XYREM [Suspect]
     Active Substance: SODIUM OXYBATE
     Indication: NARCOLEPSY
     Dosage: 3 GRAM, BID
     Route: 048
     Dates: start: 200704
  9. TIZANIDINE. [Suspect]
     Active Substance: TIZANIDINE
     Indication: FIBROMYALGIA
     Dates: start: 200903
  10. MELOXICAM. [Concomitant]
     Active Substance: MELOXICAM
     Indication: PRODUCT USED FOR UNKNOWN INDICATION
  11. XYREM [Suspect]
     Active Substance: SODIUM OXYBATE
     Dosage: 4.5 GRAM, BID
     Route: 048
  12. PREGABALIN. [Concomitant]
     Active Substance: PREGABALIN
     Indication: PRODUCT USED FOR UNKNOWN INDICATION

REACTIONS (11)
  - Gastrooesophageal reflux disease [Unknown]
  - Psychotic disorder [Recovered/Resolved]
  - Hypertonic bladder [Not Recovered/Not Resolved]
  - Somnolence [Not Recovered/Not Resolved]
  - Prostatic disorder [Not Recovered/Not Resolved]
  - Major depression [Unknown]
  - Psychotic disorder [Not Recovered/Not Resolved]
  - Mood altered [Not Recovered/Not Resolved]
  - Arthritis [Unknown]
  - Hallucination [Recovered/Resolved]
  - Back pain [Unknown]

NARRATIVE: CASE EVENT DATE: 20091021
